FAERS Safety Report 12127890 (Version 1)
Quarter: 2016Q1

REPORT INFORMATION
  Report Type: Report from Study
  Country: US (occurrence: US)
  Receive Date: 20160229
  Receipt Date: 20160229
  Transmission Date: 20160526
  Serious: Yes (Hospitalization)
  Sender: FDA-Public Use
  Company Number: US-BIOGEN-2014BI122907

PATIENT
  Age: 54 Year
  Sex: Female

DRUGS (1)
  1. AVONEX [Suspect]
     Active Substance: INTERFERON BETA-1A
     Indication: MULTIPLE SCLEROSIS
     Route: 030
     Dates: start: 20130131

REACTIONS (8)
  - Multiple sclerosis relapse [Recovered/Resolved]
  - Urinary retention [Unknown]
  - Memory impairment [Unknown]
  - Sepsis [Recovered/Resolved]
  - Coma [Recovered/Resolved]
  - Pain [Not Recovered/Not Resolved]
  - Cystitis [Recovered/Resolved]
  - Gait disturbance [Not Recovered/Not Resolved]

NARRATIVE: CASE EVENT DATE: 2013
